FAERS Safety Report 5446896-6 (Version None)
Quarter: 2007Q3

REPORT INFORMATION
  Report Type: 
  Country: None (occurrence: None)
  Receive Date: 20070907
  Receipt Date: 20070827
  Transmission Date: 20080115
  Serious: Yes (Other)
  Sender: FDA-Public Use
  Company Number: JP-PFIZER INC-2007073067

PATIENT
  Age: 39 Year
  Sex: Female

DRUGS (5)
  1. LIPITOR [Suspect]
     Dosage: DAILY DOSE:10MG
     Route: 048
     Dates: start: 20070817, end: 20070820
  2. ITOROL [Suspect]
     Dosage: DAILY DOSE:40MG
     Route: 048
     Dates: start: 20070817, end: 20070820
  3. HERBESSER R [Suspect]
     Dosage: DAILY DOSE:200MG
     Route: 048
  4. ASPIRIN [Concomitant]
     Route: 048
  5. NITROPEN [Concomitant]
     Route: 048

REACTIONS (3)
  - ANGINA UNSTABLE [None]
  - MYALGIA [None]
  - MYOCARDIAL INFARCTION [None]
